FAERS Safety Report 10958003 (Version 6)
Quarter: 2015Q2

REPORT INFORMATION
  Report Type: Spontaneous
  Country: US (occurrence: US)
  Receive Date: 20150326
  Receipt Date: 20150429
  Transmission Date: 20150821
  Serious: Yes (Hospitalization, Disabling, Other)
  Sender: FDA-Public Use
  Company Number: US-009507513-1201USA00994

PATIENT
  Sex: Female

DRUGS (3)
  1. ALENDRONATE SODIUM. [Suspect]
     Active Substance: ALENDRONATE SODIUM
     Indication: OSTEOPOROSIS
     Dosage: 70 MG, QW
     Route: 048
     Dates: start: 20080211, end: 20110814
  2. FOSAMAX [Suspect]
     Active Substance: ALENDRONATE SODIUM
     Dosage: 70 MG, QW
     Route: 048
     Dates: start: 20020820, end: 20080113
  3. FOSAMAX [Suspect]
     Active Substance: ALENDRONATE SODIUM
     Indication: OSTEOPOROSIS
     Dosage: 10 MG, UNK
     Route: 048
     Dates: start: 2000, end: 20020803

REACTIONS (55)
  - Phlebitis [Recovered/Resolved]
  - Aortic valve incompetence [Unknown]
  - Asthma [Unknown]
  - Pericardial effusion [Unknown]
  - Breast disorder female [Unknown]
  - Gastrooesophageal reflux disease [Unknown]
  - Ear disorder [Unknown]
  - Hernia [Unknown]
  - Foot fracture [Unknown]
  - Hysterosalpingo-oophorectomy [Unknown]
  - Malignant breast lump removal [Unknown]
  - Tympanic membrane perforation [Unknown]
  - Eustachian tube dysfunction [Unknown]
  - Cartilage injury [Unknown]
  - Respiratory disorder [Unknown]
  - Muscle spasms [Unknown]
  - Nasal polyps [Unknown]
  - Intramedullary rod insertion [Unknown]
  - Ventricular tachycardia [Recovered/Resolved]
  - Joint effusion [Unknown]
  - Inguinal hernia [Unknown]
  - Umbilical hernia repair [Unknown]
  - Arthralgia [Unknown]
  - Osteoarthritis [Recovering/Resolving]
  - Drug hypersensitivity [Recovered/Resolved]
  - Arthropathy [Unknown]
  - Hypercholesterolaemia [Unknown]
  - Femoroacetabular impingement [Unknown]
  - Femur fracture [Recovered/Resolved]
  - Tricuspid valve incompetence [Unknown]
  - Breast cancer [Unknown]
  - Anaemia postoperative [Unknown]
  - Femoral hernia [Unknown]
  - Gastrointestinal tract adenoma [Unknown]
  - Vomiting [Unknown]
  - Bone metabolism disorder [Unknown]
  - Cyst [Unknown]
  - Bladder disorder [Unknown]
  - Bone disorder [Unknown]
  - Arthralgia [Recovering/Resolving]
  - Femur fracture [Unknown]
  - Bundle branch block left [Unknown]
  - Rash [Recovered/Resolved]
  - Inguinal hernia repair [Unknown]
  - Sinus operation [Unknown]
  - Hyperkeratosis [Unknown]
  - Large intestine benign neoplasm [Unknown]
  - Nausea [Unknown]
  - Intramedullary rod insertion [Unknown]
  - Umbilical hernia [Unknown]
  - Osteoarthritis [Unknown]
  - Aspirin-exacerbated respiratory disease [Unknown]
  - Extraskeletal ossification [Unknown]
  - Electrocardiogram abnormal [Unknown]
  - Palpitations [Unknown]

NARRATIVE: CASE EVENT DATE: 200205
